FAERS Safety Report 9248712 (Version 1)
Quarter: 2013Q1

REPORT INFORMATION
  Report Type: Spontaneous
  Country: US (occurrence: None)
  Receive Date: 20130305
  Receipt Date: 20130305
  Transmission Date: 20140127
  Serious: Yes (Other)
  Sender: FDA-Public Use
  Company Number: 163-21880-12091633 (0)

PATIENT
  Age: 62 Year
  Sex: Male

DRUGS (17)
  1. REVLIMID [Suspect]
     Indication: PLASMA CELL MYELOMA
     Dosage: 25 MG, 21 IN 21 D, PO
     Route: 048
     Dates: start: 20120508, end: 201208
  2. ASPIRIN (ACETYLSALICYLIC ACID) [Concomitant]
  3. BENDRYL (DIPHENHYDRAMINE HYDROCHLOIRDE) [Concomitant]
  4. CALCIUM + VITAMIN D (CALCIUM + VIT D) [Concomitant]
  5. LISINOPRIL (LISINOPRIL) [Concomitant]
  6. LORAZEPAM (LORAZEPAM) [Concomitant]
  7. METFORMIN (METFORMIN) [Concomitant]
  8. VITAMINS [Concomitant]
  9. NEURO ESSENTIAL (OTHER THERAPEUTICC PRODUCTS) [Concomitant]
  10. ACETAMINOPHEN\HYDROCODONE BITARTRATE [Concomitant]
  11. ROBAXIN (METHOCARBAMOL) [Concomitant]
  12. SENNA [Concomitant]
  13. SUDAFED (PSEUDIEPHEDRINE HYDROCHLORIDE) [Concomitant]
  14. TOPROL XL (METOPROLOL SUCCINATE) (100 MILLIGRAM) (METOPROLOL SUCCINATE) [Concomitant]
  15. VELCADE (BORTEZOMIB) [Concomitant]
  16. ZANTAC (RANITDINE HYDROCHLORIDE) [Concomitant]
  17. ZOMETA (ZOLERDONIC ACID) [Concomitant]

REACTIONS (3)
  - Renal failure [None]
  - Drug ineffective [None]
  - Tumour marker increased [None]
